FAERS Safety Report 9976974 (Version 1)
Quarter: 2014Q1

REPORT INFORMATION
  Report Type: Report from Study
  Country: US (occurrence: US)
  Receive Date: 20140306
  Receipt Date: 20140306
  Transmission Date: 20141002
  Serious: No
  Sender: FDA-Public Use
  Company Number: US-ABBVIE-13P-163-1167982-00

PATIENT
  Sex: Female

DRUGS (16)
  1. HUMIRA [Suspect]
     Indication: CROHN^S DISEASE
     Dates: start: 20130910
  2. ENTOCORT [Concomitant]
     Indication: CROHN^S DISEASE
  3. LISINOPRIL [Concomitant]
     Indication: BLOOD PRESSURE
  4. AMLODIPINE [Concomitant]
     Indication: HYPERTENSION
  5. POLY-IRON [Concomitant]
     Indication: PRODUCT USED FOR UNKNOWN INDICATION
  6. MULTIVITAMIN [Concomitant]
     Indication: PRODUCT USED FOR UNKNOWN INDICATION
  7. FISH OIL [Concomitant]
     Indication: PRODUCT USED FOR UNKNOWN INDICATION
  8. NIACIN [Concomitant]
     Indication: PRODUCT USED FOR UNKNOWN INDICATION
  9. PRILOSEC [Concomitant]
     Indication: GASTROOESOPHAGEAL REFLUX DISEASE
  10. PROBIOTICS [Concomitant]
     Indication: PRODUCT USED FOR UNKNOWN INDICATION
  11. BABY ASPIRIN [Concomitant]
     Indication: PRODUCT USED FOR UNKNOWN INDICATION
     Dosage: AT BEDTIME
  12. ADVAIR [Concomitant]
     Indication: ASTHMA
     Dosage: IN THE MORNING
  13. GEMFIBROZIL [Concomitant]
     Indication: BLOOD CHOLESTEROL
  14. AMITRIPTYLINE [Concomitant]
     Indication: HEADACHE
     Dosage: AT NIGHT
  15. AMITRIPTYLINE [Concomitant]
     Indication: PROPHYLAXIS
  16. IRON [Concomitant]
     Indication: PRODUCT USED FOR UNKNOWN INDICATION
     Dates: end: 2013

REACTIONS (4)
  - Serum ferritin increased [Unknown]
  - Gastrointestinal inflammation [Recovering/Resolving]
  - Gastrointestinal ulcer [Recovering/Resolving]
  - Gastrointestinal haemorrhage [Recovering/Resolving]
